FAERS Safety Report 15016259 (Version 1)
Quarter: 2018Q2

REPORT INFORMATION
  Report Type: Spontaneous
  Country: US (occurrence: US)
  Receive Date: 20180523
  Receipt Date: 20180523
  Transmission Date: 20180711
  Serious: Yes (Other)
  Sender: FDA-Public Use
  Company Number: None

PATIENT
  Age: 36 Year
  Sex: Female
  Weight: 62.6 kg

DRUGS (1)
  1. BUPRENORPHINE/NALOXONE TAB 8/2MG TAB [Suspect]
     Active Substance: BUPRENORPHINE\NALOXONE
     Dosage: ?          OTHER DOSE:12/3 MG;?
     Route: 058
     Dates: start: 20171212, end: 20180523

REACTIONS (2)
  - Headache [None]
  - Insurance issue [None]
